FAERS Safety Report 10836202 (Version 1)
Quarter: 2015Q1

REPORT INFORMATION
  Report Type: Spontaneous
  Country: KR (occurrence: None)
  Receive Date: 20150218
  Receipt Date: 20150218
  Transmission Date: 20150721
  Serious: Yes (Death, Life-Threatening)
  Sender: FDA-Public Use
  Company Number: FK201500758

PATIENT
  Age: 10 Month
  Sex: Female

DRUGS (2)
  1. METHYLPREDNISOLONE (MANUFACTURER UNKNOWN) (METHYLPREDNISOLONE SODIUM SUCCINATE) (METHYLPREDNISOLONE SODIUM SUCCINATE) [Suspect]
     Active Substance: METHYLPREDNISOLONE
     Indication: PULMONARY ALVEOLAR HAEMORRHAGE
  2. RECOMBINANT FACTOR VIIA (FACTOR VIIA, RECOMBINANT) [Concomitant]

REACTIONS (2)
  - Acinetobacter infection [None]
  - Septic shock [None]
